FAERS Safety Report 23219499 (Version 1)
Quarter: 2023Q4

REPORT INFORMATION
  Report Type: Spontaneous
  Country: US (occurrence: US)
  Receive Date: 20231122
  Receipt Date: 20231122
  Transmission Date: 20240109
  Serious: Yes (Death, Other)
  Sender: FDA-Public Use
  Company Number: US-GILEAD-2023-0652118

PATIENT
  Age: 69 Year
  Sex: Male
  Weight: 128.9 kg

DRUGS (1)
  1. TECARTUS [Suspect]
     Active Substance: BREXUCABTAGENE AUTOLEUCEL
     Indication: Mantle cell lymphoma
     Dosage: UNK
     Route: 042
     Dates: start: 20230918, end: 20230918

REACTIONS (15)
  - Death [Fatal]
  - Hyperbilirubinaemia [Unknown]
  - Pulmonary oedema [Unknown]
  - Arrhythmia [Unknown]
  - Cytokine release syndrome [Unknown]
  - Immune effector cell-associated neurotoxicity syndrome [Unknown]
  - Nausea [Unknown]
  - Decreased appetite [Unknown]
  - Fatigue [Unknown]
  - Hypervolaemia [Unknown]
  - Oliguria [Unknown]
  - Alanine aminotransferase abnormal [Unknown]
  - Hypofibrinogenaemia [Unknown]
  - Aspartate aminotransferase increased [Unknown]
  - Agitation [Unknown]

NARRATIVE: CASE EVENT DATE: 20230920
